FAERS Safety Report 11815760 (Version 1)
Quarter: 2015Q4

REPORT INFORMATION
  Report Type: Spontaneous
  Country: US (occurrence: US)
  Receive Date: 20151209
  Receipt Date: 20151209
  Transmission Date: 20160314
  Serious: Yes (Life-Threatening)
  Sender: FDA-Public Use
  Company Number: US-ALK ABELLO INC-1045271

PATIENT
  Age: 11 Year
  Sex: Male

DRUGS (3)
  1. ALLERGENS EXTRACT NOS [Suspect]
     Active Substance: ALLERGENIC EXTRACTS
  2. BEPREVE [Concomitant]
     Active Substance: BEPOTASTINE BESILATE
     Route: 047
  3. ALBUTEROL. [Concomitant]
     Active Substance: ALBUTEROL
     Route: 055

REACTIONS (3)
  - Urticaria [Recovered/Resolved]
  - Anaphylactic reaction [None]
  - Swollen tongue [Recovered/Resolved]
